FAERS Safety Report 25984095 (Version 1)
Quarter: 2025Q4

REPORT INFORMATION
  Report Type: Spontaneous
  Country: EU (occurrence: EU)
  Receive Date: 20251031
  Receipt Date: 20251031
  Transmission Date: 20260118
  Serious: Yes (Other)
  Sender: RANBAXY
  Company Number: EU-SUN PHARMACEUTICAL INDUSTRIES LTD-2025RR-534086

PATIENT
  Age: 24 Year
  Sex: Female
  Weight: 60 kg

DRUGS (5)
  1. VENLAFAXINE [Suspect]
     Active Substance: VENLAFAXINE HYDROCHLORIDE
     Indication: Product used for unknown indication
     Dosage: 225 MILLIGRAM, 1 TABLET OF 150 MG, 1 TABLET OF 75 MG
     Route: 048
     Dates: start: 20250122, end: 20250122
  2. QUETIAPINE [Suspect]
     Active Substance: QUETIAPINE
     Indication: Product used for unknown indication
     Dosage: 300 MILLIGRAM, 1 EXTENDED-RELEASE TABLET
     Route: 048
     Dates: start: 20250122, end: 20250122
  3. LOXAPINE [Suspect]
     Active Substance: LOXAPINE
     Indication: Product used for unknown indication
     Dosage: 150 MILLIGRAM, 6 TABLETS INSTEAD OF 1 TABLET (USUAL TREATMENT)
     Route: 048
     Dates: start: 20250122, end: 20250122
  4. TROPATEPINE HYDROCHLORIDE [Suspect]
     Active Substance: TROPATEPINE HYDROCHLORIDE
     Indication: Product used for unknown indication
     Dosage: 20 MILLIGRAM, 2 TABLETS (INSTEAD OF 1 TABLET IN THE USUAL TREATMENT)
     Route: 048
     Dates: start: 20250122, end: 20250122
  5. CLOBAZAM [Suspect]
     Active Substance: CLOBAZAM
     Indication: Product used for unknown indication
     Dosage: 10 MILLIGRAM, 1 TABLET
     Route: 048
     Dates: start: 20250122, end: 20250122

REACTIONS (3)
  - Drug use disorder [Unknown]
  - Muscle twitching [Recovered/Resolved]
  - Sinus tachycardia [Recovered/Resolved]

NARRATIVE: CASE EVENT DATE: 20250122
